FAERS Safety Report 15470472 (Version 1)
Quarter: 2018Q4

REPORT INFORMATION
  Report Type: Spontaneous
  Country: NL (occurrence: NL)
  Receive Date: 20181005
  Receipt Date: 20181005
  Transmission Date: 20190205
  Serious: Yes (Other)
  Sender: FDA-Public Use
  Company Number: NL-SA-2018SA269261

PATIENT
  Age: 46 Year
  Sex: Male
  Weight: 75 kg

DRUGS (5)
  1. HYDROCORTISONE [HYDROCORTISONE ACETATE] [Concomitant]
     Active Substance: HYDROCORTISONE ACETATE
     Indication: SKIN DISORDER
     Dosage: 1 DF, Q12H
     Dates: start: 2018, end: 2018
  2. MICONAZOLE NITRATE. [Concomitant]
     Active Substance: MICONAZOLE NITRATE
     Dosage: USED DURING THE LAST PERIOD
     Dates: start: 2018
  3. SOFRADEX (DEXAMETHASONE\FRAMYCETIN SULFATE\GRAMICIDIN) [Suspect]
     Active Substance: DEXAMETHASONE\FRAMYCETIN SULFATE\GRAMICIDIN
     Indication: EAR INFECTION
     Dosage: 3X DGS 3 DRUPPELS
     Dates: start: 201808, end: 201808
  4. TRIAMCINOLONE ACETONIDE. [Suspect]
     Active Substance: TRIAMCINOLONE ACETONIDE
     Indication: EAR INFECTION
     Dosage: 3 GTT DROPS, Q8H
     Dates: start: 201206, end: 201808
  5. HYDROCORTISONE ACETATE. [Suspect]
     Active Substance: HYDROCORTISONE ACETATE
     Indication: EAR INFECTION
     Dosage: 3X DAYS X 3 DROPS
     Dates: start: 201808, end: 201808

REACTIONS (1)
  - Chorioretinopathy [Not Recovered/Not Resolved]

NARRATIVE: CASE EVENT DATE: 20180827
